FAERS Safety Report 7227432-0 (Version None)
Quarter: 2011Q1

REPORT INFORMATION
  Report Type: 
  Country: None (occurrence: None)
  Receive Date: 20110111
  Receipt Date: 20110111
  Transmission Date: 20110831
  Serious: Yes (Other)
  Sender: FDA-Public Use
  Company Number: None

PATIENT
  Sex: Male
  Weight: 10.6 kg

DRUGS (1)
  1. SINGULAIR [Suspect]
     Indication: DYSTONIA
     Dates: start: 20100101, end: 20100109

REACTIONS (1)
  - OROMANDIBULAR DYSTONIA [None]
